FAERS Safety Report 7612242-2 (Version None)
Quarter: 2011Q3

REPORT INFORMATION
  Report Type: 
  Country: None (occurrence: None)
  Receive Date: 20110715
  Receipt Date: 20110701
  Transmission Date: 20111222
  Serious: Yes (Hospitalization)
  Sender: FDA-Public Use
  Company Number: PHHY2011AR59136

PATIENT
  Sex: Female

DRUGS (2)
  1. EXFORGE [Suspect]
     Indication: BLOOD PRESSURE
     Dosage: 0.5 DF (VALSARTAN 160MG/ 5MG AMLODIPINE) DAILY
  2. DIURETICS [Concomitant]

REACTIONS (5)
  - ARTERIAL OCCLUSIVE DISEASE [None]
  - PALPITATIONS [None]
  - INFARCTION [None]
  - BLOOD PRESSURE FLUCTUATION [None]
  - WRONG TECHNIQUE IN DRUG USAGE PROCESS [None]
